FAERS Safety Report 18799930 (Version 3)
Quarter: 2021Q4

REPORT INFORMATION
  Report Type: Spontaneous
  Country: US (occurrence: US)
  Receive Date: 20210128
  Receipt Date: 20211115
  Transmission Date: 20220303
  Serious: No
  Sender: FDA-Public Use
  Company Number: US-TEVA-2021-US-1871618

PATIENT
  Age: 48 Year
  Sex: Male

DRUGS (5)
  1. CLONAZEPAM [Suspect]
     Active Substance: CLONAZEPAM
     Indication: Skin tightness
     Dosage: 3 MILLIGRAM DAILY; START DATE: 2014 OR 2015 (IT FOR ABOUT 5 TO 6 YEARS)
     Route: 048
     Dates: end: 2018
  2. CLONAZEPAM [Suspect]
     Active Substance: CLONAZEPAM
     Indication: Anxiety
     Dosage: 3 MILLIGRAM DAILY;
     Route: 048
     Dates: start: 2019
  3. CLONAZEPAM [Suspect]
     Active Substance: CLONAZEPAM
     Indication: Plasma cell myeloma
     Dosage: 3 MILLIGRAM DAILY;
     Route: 048
     Dates: start: 202101
  4. CLONAZEPAM [Suspect]
     Active Substance: CLONAZEPAM
     Indication: Brain neoplasm
     Dosage: 2.5 TABLETS PER DAY
     Route: 048
     Dates: start: 20211017
  5. CLONAZEPAM [Suspect]
     Active Substance: CLONAZEPAM
     Indication: Seizure

REACTIONS (14)
  - Dizziness [Unknown]
  - Disorientation [Recovered/Resolved]
  - Disturbance in attention [Recovered/Resolved]
  - Feeling abnormal [Recovered/Resolved]
  - Dysarthria [Recovered/Resolved]
  - Dyspnoea [Unknown]
  - Skin tightness [Unknown]
  - Tinnitus [Unknown]
  - Palpitations [Unknown]
  - Drug ineffective [Unknown]
  - Headache [Unknown]
  - Product quality issue [Unknown]
  - Product use in unapproved indication [Unknown]
  - Off label use [Unknown]

NARRATIVE: CASE EVENT DATE: 20210101
